FAERS Safety Report 8806080 (Version 1)
Quarter: 2012Q4

REPORT INFORMATION
  Report Type: Spontaneous
  Country: US (occurrence: None)
  Receive Date: 20120917
  Receipt Date: 20120917
  Transmission Date: 20130627
  Serious: Yes (Other)
  Sender: FDA-Public Use
  Company Number: ACO_31906_2012

PATIENT
  Age: 51 Year
  Sex: Male
  Weight: 81.6 kg

DRUGS (6)
  1. AMPYRA [Suspect]
     Route: 048
     Dates: start: 20120710, end: 20120806
  2. AMPYRA [Suspect]
     Route: 048
     Dates: start: 201208, end: 20120901
  3. BACLOFEN (BACLOFEN) [Concomitant]
  4. LEXAPRO (ESCITALOPRAM OXALATE) [Concomitant]
  5. CLONAZEPAM (CLONAZEPAM) [Concomitant]
  6. OXYBUTYNIN CHLORIDE (OXYBUTYNIN HYDROCHLORIDE) [Concomitant]

REACTIONS (1)
  - Convulsion [None]
